FAERS Safety Report 5367160-X (Version None)
Quarter: 2007Q2

REPORT INFORMATION
  Report Type: 
  Country: None (occurrence: None)
  Receive Date: 20070622
  Receipt Date: 20070213
  Transmission Date: 20071010
  Serious: Yes (Hospitalization)
  Sender: FDA-Public Use
  Company Number: US-BRISTOL-MYERS SQUIBB COMPANY-13686266

PATIENT
  Age: 74 Year
  Sex: Male

DRUGS (4)
  1. SINEMET [Suspect]
     Route: 048
  2. ALFUZOSIN HCL [Suspect]
     Route: 048
  3. FENTANYL [Suspect]
  4. NORTRIPTYLINE HCL [Suspect]
     Route: 048

REACTIONS (1)
  - HYPOTENSION [None]
